FAERS Safety Report 20925178 (Version 10)
Quarter: 2022Q4

REPORT INFORMATION
  Report Type: Spontaneous
  Country: US (occurrence: US)
  Receive Date: 20220607
  Receipt Date: 20221110
  Transmission Date: 20230112
  Serious: No
  Sender: FDA-Public Use
  Company Number: US-PFIZER INC-202200789161

PATIENT
  Age: 69 Year
  Sex: Female

DRUGS (3)
  1. EUCRISA [Suspect]
     Active Substance: CRISABOROLE
     Indication: Dermatitis atopic
     Dosage: APPLY A THIN LAYER TO AFFECTED AREAS (TRUNK/LEGS) DAILY
     Route: 061
  2. EUCRISA [Suspect]
     Active Substance: CRISABOROLE
     Indication: Pruritus
     Dosage: 60-G TUBE, 30-DAY SUPPLY
  3. EUCRISA [Suspect]
     Active Substance: CRISABOROLE
     Dosage: APPLY TO AFFECTED AREAS AS NECESSARY
     Route: 061

REACTIONS (2)
  - Off label use [Unknown]
  - Pruritus [Unknown]
